FAERS Safety Report 20719258 (Version 1)
Quarter: 2022Q2

REPORT INFORMATION
  Report Type: Report from Study
  Country: CO (occurrence: CO)
  Receive Date: 20220418
  Receipt Date: 20220418
  Transmission Date: 20220720
  Serious: Yes (Death, Other)
  Sender: FDA-Public Use
  Company Number: CO-UCBSA-2022021417

PATIENT
  Age: 73 Year
  Sex: Male

DRUGS (1)
  1. ROTIGOTINE [Suspect]
     Active Substance: ROTIGOTINE
     Indication: Parkinson^s disease
     Dosage: 8 MILLIGRAM, ONCE DAILY (QD)
     Route: 062
     Dates: start: 20190822, end: 20220127

REACTIONS (6)
  - Aspiration [Fatal]
  - Parkinson^s disease [Unknown]
  - Bedridden [Unknown]
  - Depression [Unknown]
  - Ulcer [Unknown]
  - Insomnia [Unknown]
